FAERS Safety Report 5030992-1 (Version None)
Quarter: 2006Q2

REPORT INFORMATION
  Report Type: 
  Country: None (occurrence: None)
  Receive Date: 20060621
  Receipt Date: 20060309
  Transmission Date: 20061013
  Serious: No
  Sender: FDA-Public Use
  Company Number: US-GLAXOSMITHKLINE-A0596936A

PATIENT
  Age: 62 Year
  Sex: Female

DRUGS (5)
  1. FLOVENT [Suspect]
     Indication: ASTHMA
     Dosage: 2PUFF TWICE PER DAY
     Route: 055
     Dates: start: 20060204
  2. ALBUTEROL [Concomitant]
  3. AVAPRO [Concomitant]
  4. NEXIUM [Concomitant]
  5. SYNTHROID [Concomitant]

REACTIONS (1)
  - DYSPHONIA [None]
